FAERS Safety Report 4597692-3 (Version None)
Quarter: 2005Q1

REPORT INFORMATION
  Report Type: 
  Country: None (occurrence: None)
  Receive Date: 20050303
  Receipt Date: 20050221
  Transmission Date: 20050727
  Serious: Yes (Hospitalization)
  Sender: FDA-Public Use
  Company Number: GXKR2005GB00622

PATIENT
  Age: 49 Year
  Sex: Female
  Weight: 76 kg

DRUGS (6)
  1. PENICILLIN V POTASSIUM (NGX) [Suspect]
     Indication: PHARYNGITIS
     Dosage: 500 MG, QID
     Route: 048
     Dates: start: 20050114, end: 20050121
  2. ADIPINE - SLOW RELEASE [Suspect]
     Indication: HYPERTENSION
     Dosage: 10 MG NOCTE
     Route: 048
     Dates: start: 20050111, end: 20050130
  3. TEGRETOL [Suspect]
     Indication: MIGRAINE
     Dosage: 200 MG, QD
     Route: 048
     Dates: start: 20050111, end: 20050201
  4. ATENOLOL [Concomitant]
     Dosage: 50 MG, QD
     Route: 048
  5. SIMVASTATIN [Concomitant]
     Dosage: 10 MG, QHS
     Route: 048
  6. BENDROFLUAZIDE [Concomitant]
     Dosage: 2.5 MG OM
     Route: 048

REACTIONS (3)
  - DYSPHAGIA [None]
  - PRURITUS [None]
  - RASH ERYTHEMATOUS [None]
